FAERS Safety Report 17432497 (Version 1)
Quarter: 2020Q1

REPORT INFORMATION
  Report Type: Report from Study
  Country: US (occurrence: US)
  Receive Date: 20200218
  Receipt Date: 20200218
  Transmission Date: 20200409
  Serious: Yes (Other)
  Sender: FDA-Public Use
  Company Number: US-EXELIXIS-XL18420027357

PATIENT

DRUGS (4)
  1. BLINDED XL184 [Suspect]
     Active Substance: CABOZANTINIB
     Indication: NEUROENDOCRINE TUMOUR
     Dosage: 60 MG, QD
     Route: 048
     Dates: start: 20191213, end: 20191223
  2. BLINDED XL184 [Suspect]
     Active Substance: CABOZANTINIB
     Dosage: 40 MG, QD
     Route: 048
  3. BLINDED PLACEBO [Suspect]
     Active Substance: INVESTIGATIONAL PRODUCT
     Indication: NEUROENDOCRINE TUMOUR
     Dosage: 60 MG, QD
     Route: 048
     Dates: start: 20191213, end: 20191223
  4. BLINDED PLACEBO [Suspect]
     Active Substance: INVESTIGATIONAL PRODUCT
     Dosage: 40 MG, QD
     Route: 048

REACTIONS (1)
  - Subendocardial ischaemia [Recovering/Resolving]

NARRATIVE: CASE EVENT DATE: 20200110
